FAERS Safety Report 7374548-4 (Version None)
Quarter: 2011Q1

REPORT INFORMATION
  Report Type: 
  Country: None (occurrence: None)
  Receive Date: 20110325
  Receipt Date: 20100408
  Transmission Date: 20110831
  Serious: No
  Sender: FDA-Public Use
  Company Number: US-MYLANLABS-2010S1004153

PATIENT
  Age: 39 Year
  Sex: Female
  Weight: 47.63 kg

DRUGS (7)
  1. BENADRYL [Concomitant]
     Indication: PRURITUS
  2. VALIUM [Concomitant]
     Indication: ANXIETY
  3. LEVOTHYROXINE SODIUM [Concomitant]
     Indication: HYPOTHYROIDISM
  4. FENTANYL-100 [Suspect]
     Indication: PAIN
     Dosage: Q 72 HOURS
     Route: 062
     Dates: start: 20100216, end: 20100308
  5. AMBIEN [Concomitant]
     Indication: INSOMNIA
  6. FENTANYL-100 [Suspect]
     Dosage: Q 72 HOURS
     Route: 062
     Dates: start: 20100308
  7. ESTRACE [Concomitant]
     Indication: HORMONE REPLACEMENT THERAPY

REACTIONS (8)
  - APPLICATION SITE RASH [None]
  - PRURITUS GENERALISED [None]
  - RASH [None]
  - INSOMNIA [None]
  - TONGUE BLISTERING [None]
  - OEDEMA PERIPHERAL [None]
  - DECREASED APPETITE [None]
  - DYSPHONIA [None]
